FAERS Safety Report 9267637 (Version 1)
Quarter: 2013Q2

REPORT INFORMATION
  Report Type: Spontaneous
  Country: CN (occurrence: CN)
  Receive Date: 20130502
  Receipt Date: 20130502
  Transmission Date: 20140414
  Serious: Yes (Other)
  Sender: FDA-Public Use
  Company Number: CN-MILLENNIUM PHARMACEUTICALS, INC.-2013-03138

PATIENT
  Sex: 0

DRUGS (7)
  1. VELCADE [Suspect]
     Indication: PLASMA CELL MYELOMA
     Dosage: 1.3 MG/M2, CYCLIC
     Route: 065
  2. VELCADE [Suspect]
     Dosage: 1.3 MG/M2, CYCLIC
     Route: 065
  3. DEXAMETHASONE [Suspect]
     Indication: PLASMA CELL MYELOMA
     Dosage: 20 MG/M2, CYCLIC
     Route: 042
  4. DEXAMETHASONE [Suspect]
     Dosage: 20 MG, CYCLIC
     Route: 042
  5. ADRIAMYCIN /00330901/ [Suspect]
     Indication: PLASMA CELL MYELOMA
     Dosage: 40 MG/M2, CYCLIC
     Route: 065
  6. DOXORUBICIN [Suspect]
     Indication: PLASMA CELL MYELOMA
     Dosage: 20 MG/M2, CYCLIC
     Route: 065
  7. THALIDOMIDE [Suspect]
     Indication: PLASMA CELL MYELOMA
     Dosage: 200 MG, QD
     Route: 065

REACTIONS (1)
  - Cytomegalovirus infection [Unknown]
